FAERS Safety Report 18707719 (Version 1)
Quarter: 2021Q1

REPORT INFORMATION
  Report Type: Report from Study
  Country: US (occurrence: US)
  Receive Date: 20210106
  Receipt Date: 20210106
  Transmission Date: 20210419
  Serious: No
  Sender: FDA-Public Use
  Company Number: NVSC2020US345553

PATIENT
  Age: 59 Year
  Sex: Male

DRUGS (1)
  1. ENTRESTO [Suspect]
     Active Substance: SACUBITRIL\VALSARTAN
     Indication: PRODUCT USED FOR UNKNOWN INDICATION
     Dosage: UNK, (49/51)MG
     Route: 048
     Dates: start: 2019

REACTIONS (3)
  - Fatigue [Unknown]
  - Peripheral swelling [Not Recovered/Not Resolved]
  - Asthenia [Unknown]
